FAERS Safety Report 6579014-1 (Version None)
Quarter: 2010Q1

REPORT INFORMATION
  Report Type: 
  Country: None (occurrence: None)
  Receive Date: 20100203
  Receipt Date: 20100125
  Transmission Date: 20100710
  Serious: Yes (Hospitalization)
  Sender: FDA-Public Use
  Company Number: 2009SP023491

PATIENT
  Age: 21 Year
  Sex: Female
  Weight: 58.9676 kg

DRUGS (1)
  1. NUVARING [Suspect]
     Indication: CONTRACEPTION
     Dates: start: 20070901, end: 20080801

REACTIONS (6)
  - BRAIN INJURY [None]
  - CEREBRAL HAEMORRHAGE [None]
  - CONVULSION [None]
  - MIGRAINE [None]
  - MULTIPLE INJURIES [None]
  - PAIN [None]
